FAERS Safety Report 19973427 (Version 1)
Quarter: 2021Q4

REPORT INFORMATION
  Report Type: Spontaneous
  Country: US (occurrence: US)
  Receive Date: 20211020
  Receipt Date: 20211020
  Transmission Date: 20220303
  Serious: Yes (Hospitalization)
  Sender: FDA-Public Use
  Company Number: None

PATIENT
  Age: 42 Year
  Sex: Male
  Weight: 81 kg

DRUGS (15)
  1. BUPROPION HYDROCHLORIDE [Suspect]
     Active Substance: BUPROPION HYDROCHLORIDE
     Indication: Depression
     Dosage: ?          QUANTITY:30 TABLET(S);
     Route: 048
     Dates: start: 20210821, end: 20211011
  2. BUPROPION HYDROCHLORIDE [Suspect]
     Active Substance: BUPROPION HYDROCHLORIDE
     Indication: Depression
     Dosage: ?          QUANTITY:30 TABLET(S);
     Route: 048
     Dates: start: 20211012, end: 20211014
  3. LIPITOR [Concomitant]
     Active Substance: ATORVASTATIN CALCIUM
  4. PLAVIX [Concomitant]
     Active Substance: CLOPIDOGREL BISULFATE
  5. GLUCOPHAGE ER (METFORMIN) [Concomitant]
  6. LAMICTAL [Concomitant]
     Active Substance: LAMOTRIGINE
  7. SINGULAIR [Concomitant]
     Active Substance: MONTELUKAST SODIUM
  8. OLOPATADINE (PATANASE) [Concomitant]
  9. METRONIDAZOLE [Concomitant]
     Active Substance: METRONIDAZOLE
  10. SULFACETAMIDE SULFER [Concomitant]
  11. ASPIRIN [Concomitant]
     Active Substance: ASPIRIN
  12. PEPCID [Concomitant]
     Active Substance: FAMOTIDINE
  13. MAGNESIUM OXIDE/CITRATE [Concomitant]
  14. MELATONIN [Concomitant]
     Active Substance: MELATONIN
  15. VITAMIN D3 [Concomitant]
     Active Substance: CHOLECALCIFEROL

REACTIONS (6)
  - Crying [None]
  - Insomnia [None]
  - Mania [None]
  - Logorrhoea [None]
  - Verbal abuse [None]
  - Speech disorder [None]

NARRATIVE: CASE EVENT DATE: 20211015
